FAERS Safety Report 10716270 (Version 1)
Quarter: 2015Q1

REPORT INFORMATION
  Report Type: Spontaneous
  Country: US (occurrence: None)
  Receive Date: 20150115
  Receipt Date: 20150115
  Transmission Date: 20150721
  Serious: Yes (Hospitalization)
  Sender: FDA-Public Use
  Company Number: None

PATIENT
  Age: 37 Year
  Sex: Female
  Weight: 45.02 kg

DRUGS (28)
  1. CETUXIMAB [Suspect]
     Active Substance: CETUXIMAB
     Indication: SQUAMOUS CELL CARCINOMA
     Route: 042
     Dates: start: 20140911, end: 20141223
  2. PD 0332991 (PALBOCICLIB) [Suspect]
     Active Substance: PALBOCICLIB
     Indication: SQUAMOUS CELL CARCINOMA
     Route: 048
     Dates: start: 20140911, end: 20141230
  3. LEVOFLOXACIN. [Concomitant]
     Active Substance: LEVOFLOXACIN
  4. VITAMIN E [Concomitant]
     Active Substance: .ALPHA.-TOCOPHEROL
  5. FENTANYL. [Concomitant]
     Active Substance: FENTANYL
  6. HYDROCONDONE-ACETAMINOPHEN [Concomitant]
  7. CLINDAMAX [Concomitant]
     Active Substance: CLINDAMYCIN PHOSPHATE
  8. BACLOFEN. [Concomitant]
     Active Substance: BACLOFEN
  9. MAGIC MOUTHWASH [Concomitant]
     Active Substance: DIPHENHYDRAMINE HYDROCHLORIDE\LIDOCAINE HYDROCHLORIDE\NYSTATIN
  10. MIRTAZAPINE. [Concomitant]
     Active Substance: MIRTAZAPINE
  11. MULTIVITAMIN [Concomitant]
     Active Substance: VITAMINS
  12. TRIMACINOLONE ACETONIDE [Concomitant]
  13. VITAMIN B [Concomitant]
     Active Substance: VITAMIN B
  14. ZITHROMAX [Concomitant]
     Active Substance: AZITHROMYCIN DIHYDRATE
  15. SYNTHROID [Concomitant]
     Active Substance: LEVOTHYROXINE SODIUM
  16. TRAMADOL [Concomitant]
     Active Substance: TRAMADOL
  17. DULOXETINE HCI [Concomitant]
  18. LIDOCAINE. [Concomitant]
     Active Substance: LIDOCAINE
  19. MUCINEX [Concomitant]
     Active Substance: GUAIFENESIN
  20. BENZONATATE. [Concomitant]
     Active Substance: BENZONATATE
  21. NYSTATIN. [Concomitant]
     Active Substance: NYSTATIN
  22. PILOCARPINE [Concomitant]
     Active Substance: PILOCARPINE
  23. SENNA [Concomitant]
     Active Substance: SENNA LEAF\SENNOSIDES\SENNOSIDES A AND B
  24. FLUCONAZOLE. [Concomitant]
     Active Substance: FLUCONAZOLE
  25. GABAPENTIN. [Concomitant]
     Active Substance: GABAPENTIN
  26. MINOCYCLINE [Concomitant]
     Active Substance: MINOCYCLINE\MINOCYCLINE HYDROCHLORIDE
  27. NIACIN. [Concomitant]
     Active Substance: NIACIN
  28. SALSALATE. [Concomitant]
     Active Substance: SALSALATE

REACTIONS (4)
  - Tumour pain [None]
  - Pneumonia [None]
  - Lethargy [None]
  - Lung infection [None]

NARRATIVE: CASE EVENT DATE: 20150106
